FAERS Safety Report 24015458 (Version 1)
Quarter: 2024Q2

REPORT INFORMATION
  Report Type: Spontaneous
  Country: US (occurrence: US)
  Receive Date: 20240626
  Receipt Date: 20240626
  Transmission Date: 20240716
  Serious: Yes (Other)
  Sender: FDA-Public Use
  Company Number: US-INSUD PHARMA-2406US05037

PATIENT

DRUGS (1)
  1. NUVESSA [Suspect]
     Active Substance: METRONIDAZOLE
     Indication: Clostridium difficile colitis
     Dosage: UNK, 4 WEEK COURSE
     Route: 065

REACTIONS (1)
  - Pancytopenia [Unknown]
